FAERS Safety Report 5064073-8 (Version None)
Quarter: 2006Q3

REPORT INFORMATION
  Report Type: 
  Country: None (occurrence: None)
  Receive Date: 20060706
  Receipt Date: 20060307
  Transmission Date: 20061208
  Serious: No
  Sender: FDA-Public Use
  Company Number: 200611395BWH

PATIENT
  Age: 78 Year
  Sex: Male

DRUGS (11)
  1. LEVITRA [Suspect]
     Indication: ERECTILE DYSFUNCTION
     Dosage: 5 MG, TOTAL DAILY, ORAL
     Route: 048
     Dates: start: 20060306
  2. OMEPRAZOLE [Concomitant]
  3. ALLOPURINOL [Concomitant]
  4. MELOXICAM [Concomitant]
  5. CLOPIDOGREL BISULFATE [Concomitant]
  6. SIMVASTATIN [Concomitant]
  7. ATENOLOL [Concomitant]
  8. FELODIPINE [Concomitant]
  9. CETIRIZINE HCL [Concomitant]
  10. TYLENOL W/ CODEINE [Concomitant]
  11. VALIUM [Concomitant]

REACTIONS (1)
  - ERECTILE DYSFUNCTION [None]
